FAERS Safety Report 15682546 (Version 14)
Quarter: 2022Q2

REPORT INFORMATION
  Report Type: Report from Study
  Country: BR (occurrence: BR)
  Receive Date: 20181203
  Receipt Date: 20220613
  Transmission Date: 20220721
  Serious: Yes (Life-Threatening, Other)
  Sender: FDA-Public Use
  Company Number: PHHY2018BR091161

PATIENT
  Sex: Male
  Weight: 70 kg

DRUGS (10)
  1. COSENTYX [Suspect]
     Active Substance: SECUKINUMAB
     Indication: Ankylosing spondylitis
     Dosage: 150 MG, QMO
     Route: 058
     Dates: start: 20171218
  2. COSENTYX [Suspect]
     Active Substance: SECUKINUMAB
     Dosage: 1 DF, QMO
     Route: 065
     Dates: start: 201801
  3. COSENTYX [Suspect]
     Active Substance: SECUKINUMAB
     Dosage: 150 MG, QMO
     Route: 058
     Dates: start: 20180130
  4. COSENTYX [Suspect]
     Active Substance: SECUKINUMAB
     Dosage: 150 MG, QMO
     Route: 058
  5. COSENTYX [Suspect]
     Active Substance: SECUKINUMAB
     Dosage: 150 MG, QMO
     Route: 058
     Dates: start: 20190125
  6. COSENTYX [Suspect]
     Active Substance: SECUKINUMAB
     Dosage: 150 MG, QMO
     Route: 058
  7. COSENTYX [Suspect]
     Active Substance: SECUKINUMAB
     Dosage: UNK
     Route: 065
     Dates: start: 20200101
  8. COSENTYX [Suspect]
     Active Substance: SECUKINUMAB
     Dosage: 150 MG, QMO (STARTED MORE THAN 2 YEARS AGO AND STOOPED ON 16/18 MAR 2022)
     Route: 065
  9. RIVOTRIL [Concomitant]
     Active Substance: CLONAZEPAM
     Indication: Product used for unknown indication
     Dosage: UNK (1 TO 3 A DAY)
     Route: 060
     Dates: start: 2005
  10. OMEPRAZOLE [Concomitant]
     Active Substance: OMEPRAZOLE
     Indication: Gastrointestinal disorder
     Dosage: 1 DF, QD
     Route: 048

REACTIONS (82)
  - Suicide attempt [Unknown]
  - Near death experience [Unknown]
  - Dyspnoea [Not Recovered/Not Resolved]
  - Chest pain [Recovered/Resolved]
  - Urinary tract infection [Not Recovered/Not Resolved]
  - Micturition urgency [Not Recovered/Not Resolved]
  - Dysuria [Not Recovered/Not Resolved]
  - Infarction [Not Recovered/Not Resolved]
  - Spinal pain [Recovering/Resolving]
  - Hallucination [Unknown]
  - Myocardial infarction [Not Recovered/Not Resolved]
  - Decreased activity [Not Recovered/Not Resolved]
  - Ankylosing spondylitis [Not Recovered/Not Resolved]
  - Bone swelling [Not Recovered/Not Resolved]
  - Arthralgia [Not Recovered/Not Resolved]
  - Pain in extremity [Not Recovered/Not Resolved]
  - Gait inability [Not Recovered/Not Resolved]
  - Back pain [Not Recovered/Not Resolved]
  - Neck pain [Not Recovered/Not Resolved]
  - Musculoskeletal stiffness [Not Recovered/Not Resolved]
  - Pelvic pain [Not Recovered/Not Resolved]
  - Pain [Not Recovered/Not Resolved]
  - Delirium [Recovered/Resolved]
  - Stomatitis [Not Recovered/Not Resolved]
  - Diabetes mellitus [Not Recovered/Not Resolved]
  - Eye discharge [Recovering/Resolving]
  - Head discomfort [Not Recovered/Not Resolved]
  - Lipids increased [Unknown]
  - Cardiac dysfunction [Not Recovered/Not Resolved]
  - Blood pressure increased [Recovered/Resolved]
  - Blood cholesterol increased [Not Recovered/Not Resolved]
  - Mastication disorder [Not Recovered/Not Resolved]
  - Blood triglycerides increased [Not Recovered/Not Resolved]
  - Gingival erosion [Not Recovered/Not Resolved]
  - Dental caries [Recovered/Resolved]
  - Nightmare [Not Recovered/Not Resolved]
  - Sedation [Recovered/Resolved]
  - Muscular weakness [Not Recovered/Not Resolved]
  - Drug ineffective [Not Recovered/Not Resolved]
  - Blood pressure decreased [Not Recovered/Not Resolved]
  - Depression [Not Recovered/Not Resolved]
  - Diarrhoea [Recovered/Resolved]
  - Arteriosclerosis [Not Recovered/Not Resolved]
  - Eating disorder [Not Recovered/Not Resolved]
  - Dizziness [Not Recovered/Not Resolved]
  - Depression [Recovered/Resolved]
  - Weight decreased [Not Recovered/Not Resolved]
  - Blood pressure increased [Not Recovered/Not Resolved]
  - Vision blurred [Not Recovered/Not Resolved]
  - Tooth loss [Not Recovered/Not Resolved]
  - Wound [Not Recovered/Not Resolved]
  - Venous occlusion [Not Recovered/Not Resolved]
  - Condition aggravated [Not Recovered/Not Resolved]
  - Fatigue [Not Recovered/Not Resolved]
  - Malaise [Not Recovered/Not Resolved]
  - Thinking abnormal [Not Recovered/Not Resolved]
  - Anxiety [Not Recovered/Not Resolved]
  - Insomnia [Unknown]
  - Taste disorder [Not Recovered/Not Resolved]
  - Depressed mood [Not Recovered/Not Resolved]
  - Oropharyngeal pain [Unknown]
  - Dysgeusia [Unknown]
  - Ear pain [Unknown]
  - Dysphagia [Unknown]
  - Cardiac disorder [Unknown]
  - Feelings of worthlessness [Unknown]
  - Irritability [Unknown]
  - Nervousness [Unknown]
  - Dysstasia [Not Recovered/Not Resolved]
  - Middle insomnia [Unknown]
  - Hypokinesia [Not Recovered/Not Resolved]
  - Hypovitaminosis [Unknown]
  - Dry mouth [Not Recovered/Not Resolved]
  - Road traffic accident [Unknown]
  - Memory impairment [Not Recovered/Not Resolved]
  - Tongue disorder [Not Recovered/Not Resolved]
  - Arthritis [Unknown]
  - Blood pressure decreased [Recovered/Resolved]
  - Feeding disorder [Recovering/Resolving]
  - Hypoacusis [Not Recovered/Not Resolved]
  - Lymphadenopathy [Unknown]
  - Lymphadenitis [Not Recovered/Not Resolved]

NARRATIVE: CASE EVENT DATE: 20170101
